FAERS Safety Report 17966307 (Version 9)
Quarter: 2021Q1

REPORT INFORMATION
  Report Type: Report from Study
  Country: US (occurrence: US)
  Receive Date: 20200630
  Receipt Date: 20210308
  Transmission Date: 20210419
  Serious: No
  Sender: FDA-Public Use
  Company Number: NVSC2020US183720

PATIENT
  Age: 58 Year
  Sex: Male

DRUGS (2)
  1. ENTRESTO [Suspect]
     Active Substance: SACUBITRIL\VALSARTAN
     Dosage: 50 MG, BID (24/26 MG)
     Route: 048
     Dates: start: 202006
  2. ENTRESTO [Suspect]
     Active Substance: SACUBITRIL\VALSARTAN
     Indication: CARDIAC FAILURE CHRONIC
     Dosage: UNK UNK, BID
     Route: 065
     Dates: start: 20200626

REACTIONS (6)
  - Memory impairment [Unknown]
  - Decreased activity [Unknown]
  - Weight increased [Unknown]
  - Weight decreased [Unknown]
  - Hypoacusis [Unknown]
  - Polydipsia [Unknown]

NARRATIVE: CASE EVENT DATE: 202011
